FAERS Safety Report 6724737-4 (Version None)
Quarter: 2010Q2

REPORT INFORMATION
  Report Type: 
  Country: None (occurrence: None)
  Receive Date: 20100511
  Receipt Date: 20100426
  Transmission Date: 20101027
  Serious: Yes (Other)
  Sender: FDA-Public Use
  Company Number: AUR-APL-2010-01199

PATIENT
  Age: 69 Year
  Sex: Male

DRUGS (1)
  1. METFORMIN HYDROCHLORIDE [Suspect]

REACTIONS (4)
  - HAEMATOCRIT DECREASED [None]
  - NEUROPATHY PERIPHERAL [None]
  - PARAESTHESIA [None]
  - VITAMIN B12 DEFICIENCY [None]
